FAERS Safety Report 8192625-5 (Version None)
Quarter: 2012Q1

REPORT INFORMATION
  Report Type: 
  Country: None (occurrence: None)
  Receive Date: 20120308
  Receipt Date: 20120302
  Transmission Date: 20120608
  Serious: Yes (Other)
  Sender: FDA-Public Use
  Company Number: US-BAYER-2011-094505

PATIENT
  Age: 31 Year
  Sex: Female
  Weight: 76.19 kg

DRUGS (6)
  1. FLUCONAZOLE [Concomitant]
  2. PROGESTERONE [Concomitant]
  3. CLOMID [Concomitant]
  4. MEDROXYPROGESTERONE [Concomitant]
  5. YAZ [Suspect]
     Indication: POLYCYSTIC OVARIES
     Dosage: UNK
     Dates: start: 20090913
  6. YAZ [Suspect]
     Dosage: UNK
     Dates: start: 20071001

REACTIONS (6)
  - BLINDNESS UNILATERAL [None]
  - INJURY [None]
  - ANHEDONIA [None]
  - PAIN [None]
  - ANXIETY [None]
  - RETINAL ARTERY OCCLUSION [None]
